FAERS Safety Report 14453206 (Version 5)
Quarter: 2018Q1

REPORT INFORMATION
  Report Type: Spontaneous
  Country: CA (occurrence: CA)
  Receive Date: 20180129
  Receipt Date: 20180222
  Transmission Date: 20180509
  Serious: Yes (Other)
  Sender: FDA-Public Use
  Company Number: CA-PFIZER INC-2018036079

PATIENT
  Age: 43 Year
  Sex: Male

DRUGS (13)
  1. METHOTREXATE SODIUM. [Suspect]
     Active Substance: METHOTREXATE SODIUM
     Dosage: 15 MG, (0.6 ML OF 25 MG/ML) WEEKLY
     Route: 058
  2. METHOTREXATE SODIUM. [Suspect]
     Active Substance: METHOTREXATE SODIUM
     Indication: RHEUMATOID ARTHRITIS
     Dosage: 2.5 MG, UNK
     Route: 048
  3. VITAMIN D3 [Concomitant]
     Active Substance: CHOLECALCIFEROL
     Dosage: 10000 IU, TABLET
     Route: 048
  4. METFORMIN HCL [Concomitant]
     Active Substance: METFORMIN HYDROCHLORIDE
     Dosage: 500 MG, TABLET
     Route: 048
  5. METHOTREXATE SODIUM. [Suspect]
     Active Substance: METHOTREXATE SODIUM
     Indication: RHEUMATOID ARTHRITIS
     Dosage: 25 MG, WEEKLY
     Route: 058
     Dates: start: 201705
  6. FOLIC ACID. [Concomitant]
     Active Substance: FOLIC ACID
     Dosage: 5 MG, TABLET
     Route: 048
  7. METHOTREXATE SODIUM. [Suspect]
     Active Substance: METHOTREXATE SODIUM
     Dosage: 7.5 MG, (0.6 ML) WEEKLY
     Route: 058
  8. RISEDRONATE [Concomitant]
     Active Substance: RISEDRONATE SODIUM
     Dosage: 35 MG, TABLET
  9. LEFLUNOMIDE. [Concomitant]
     Active Substance: LEFLUNOMIDE
     Dosage: 20 MG, DAILY
     Dates: start: 201801
  10. GLICAZIDA [Concomitant]
     Active Substance: GLICLAZIDE
     Dosage: 80 MG, UNK
  11. CALCIUM ANTACID [Concomitant]
     Active Substance: CALCIUM CARBONATE
     Dosage: 500 MG, TABLET
     Route: 048
  12. SANDOZ ROSUVASTATIN [Concomitant]
     Dosage: 10 MG, TABLET
     Route: 048
  13. COVERSYL /00790702/ [Concomitant]
     Active Substance: PERINDOPRIL
     Dosage: 8 MG, TABLET
     Route: 048

REACTIONS (3)
  - Renal impairment [Not Recovered/Not Resolved]
  - Drug ineffective [Recovering/Resolving]
  - IgA nephropathy [Unknown]
